FAERS Safety Report 8178596-6 (Version None)
Quarter: 2012Q1

REPORT INFORMATION
  Report Type: 
  Country: None (occurrence: None)
  Receive Date: 20120301
  Receipt Date: 20120221
  Transmission Date: 20120608
  Serious: Yes (Hospitalization, Other)
  Sender: FDA-Public Use
  Company Number: US-ELI_LILLY_AND_COMPANY-US201107005832

PATIENT
  Sex: Female

DRUGS (14)
  1. SYNTHROID [Concomitant]
     Dosage: 125 MG, QD
  2. PRAVASTATIN SODIUM [Concomitant]
     Dosage: 20 MG, BID
  3. ISOSORBIDE DINITRATE [Concomitant]
     Dosage: 60 MG, QD
  4. FORTEO [Suspect]
     Indication: OSTEOPOROSIS
     Dosage: 20 UG, QD
     Route: 065
  5. ASPIRIN [Concomitant]
     Dosage: 81 MG, UNK
  6. VITAMIN D [Concomitant]
  7. FORTEO [Suspect]
     Dosage: 20 UG, QD
     Route: 065
     Dates: end: 20111024
  8. FISH OIL [Concomitant]
     Dosage: 1000 MG, UNKNOWN
  9. INSULIN [Concomitant]
     Dosage: UNK, BID
  10. FORTEO [Suspect]
     Dosage: 20 UG, QD
     Route: 065
  11. FORTEO [Suspect]
     Dosage: 20 UG, QD
     Route: 065
     Dates: start: 20110101
  12. FORTEO [Suspect]
     Dosage: 20 UG, QD
     Route: 065
     Dates: end: 20110901
  13. METOPROLOL SUCCINATE [Concomitant]
     Dosage: 50 MG, BID
  14. XANAX [Concomitant]

REACTIONS (16)
  - DYSPNOEA [None]
  - PAIN [None]
  - ASTHENIA [None]
  - LUNG DISORDER [None]
  - INTENTIONAL DRUG MISUSE [None]
  - CARDIAC DISORDER [None]
  - HEARING IMPAIRED [None]
  - VASCULAR OCCLUSION [None]
  - PNEUMONIA [None]
  - PAIN IN EXTREMITY [None]
  - INFLUENZA [None]
  - PLEURITIC PAIN [None]
  - MEMORY IMPAIRMENT [None]
  - CHEST PAIN [None]
  - HYPOTHYROIDISM [None]
  - INJECTION SITE PAIN [None]
